FAERS Safety Report 22905619 (Version 2)
Quarter: 2023Q4

REPORT INFORMATION
  Report Type: Spontaneous
  Country: US (occurrence: US)
  Receive Date: 20230905
  Receipt Date: 20231004
  Transmission Date: 20240110
  Serious: Yes (Other)
  Sender: FDA-Public Use
  Company Number: US-LUPIN PHARMACEUTICALS INC.-2023-07407

PATIENT

DRUGS (1)
  1. HYDROCHLOROTHIAZIDE\LISINOPRIL [Suspect]
     Active Substance: HYDROCHLOROTHIAZIDE\LISINOPRIL
     Indication: Product used for unknown indication
     Dosage: UNK
     Route: 065

REACTIONS (1)
  - Coeliac disease [Unknown]
